FAERS Safety Report 5212026-9 (Version None)
Quarter: 2007Q1

REPORT INFORMATION
  Report Type: 
  Country: None (occurrence: None)
  Receive Date: 20070116
  Receipt Date: 20070116
  Transmission Date: 20070707
  Serious: Yes (Hospitalization)
  Sender: FDA-Public Use
  Company Number: None

PATIENT
  Age: 41 Year
  Sex: Male
  Weight: 84 kg

DRUGS (8)
  1. XIGRIS [Suspect]
     Indication: LUNG INJURY
     Dosage: 24UG/KG/HR 041
     Dates: start: 20061215, end: 20061219
  2. FENTANYL TRANSDERMAL SYSTEM [Concomitant]
  3. PROPOTOL [Concomitant]
  4. VERSED [Concomitant]
  5. BACTRIM [Concomitant]
  6. PREDNISONE TAB [Concomitant]
  7. REGIAN [Concomitant]
  8. ALBUTEROL [Concomitant]

REACTIONS (2)
  - PNEUMOTHORAX [None]
  - PROCEDURAL COMPLICATION [None]
